FAERS Safety Report 6176344-2 (Version None)
Quarter: 2009Q2

REPORT INFORMATION
  Report Type: 
  Country: None (occurrence: None)
  Receive Date: 20090501
  Receipt Date: 20090421
  Transmission Date: 20091009
  Serious: Yes (Hospitalization)
  Sender: FDA-Public Use
  Company Number: US-BIOGENIDEC-2009BI009335

PATIENT
  Age: 44 Year
  Sex: Female
  Weight: 63 kg

DRUGS (3)
  1. AVONEX [Suspect]
     Indication: MULTIPLE SCLEROSIS
     Route: 030
     Dates: start: 20081219, end: 20090312
  2. AVONEX [Suspect]
     Route: 030
     Dates: start: 20010920
  3. AVONEX [Suspect]
     Route: 030
     Dates: start: 20030901

REACTIONS (2)
  - ABASIA [None]
  - MULTIPLE SCLEROSIS RELAPSE [None]
